FAERS Safety Report 25126016 (Version 1)
Quarter: 2025Q1

REPORT INFORMATION
  Report Type: Spontaneous
  Country: US (occurrence: US)
  Receive Date: 20250326
  Receipt Date: 20250326
  Transmission Date: 20250409
  Serious: No
  Sender: BIOMARIN
  Company Number: US-BIOMARINAP-US-2025-164662

PATIENT

DRUGS (1)
  1. ROCTAVIAN [Suspect]
     Active Substance: VALOCTOCOGENE ROXAPARVOVEC-RVOX
     Indication: Factor VIII deficiency
     Route: 042
     Dates: start: 20241211, end: 20241211

REACTIONS (1)
  - Hepatic enzyme increased [Recovering/Resolving]

NARRATIVE: CASE EVENT DATE: 20241227
